FAERS Safety Report 7652961-5 (Version None)
Quarter: 2011Q3

REPORT INFORMATION
  Report Type: 
  Country: None (occurrence: None)
  Receive Date: 20110728
  Receipt Date: 20110719
  Transmission Date: 20111222
  Serious: Yes (Other)
  Sender: FDA-Public Use
  Company Number: 989743

PATIENT
  Age: 68 Year
  Sex: Male

DRUGS (5)
  1. DOMPERIDONE [Concomitant]
  2. LEUCOVORIN CALCIUM [Suspect]
     Indication: ADENOCARCINOMA
     Dosage: 38 MG
  3. (ANTITHROMBOTIC AGENTS) [Suspect]
     Indication: PRODUCT USED FOR UNKNOWN INDICATION
  4. DEXAMETHASONE [Concomitant]
  5. FLUOROURACIL [Suspect]
     Indication: ADENOCARCINOMA
     Dosage: 800 MG

REACTIONS (15)
  - PARAESTHESIA [None]
  - HYPERPATHIA [None]
  - PULMONARY EMBOLISM [None]
  - FEMORAL ARTERY OCCLUSION [None]
  - SWELLING [None]
  - PNEUMONIA [None]
  - HYPOAESTHESIA [None]
  - HYPERAESTHESIA [None]
  - TOXICITY TO VARIOUS AGENTS [None]
  - PHANTOM PAIN [None]
  - MEDICAL DEVICE PAIN [None]
  - FEELING COLD [None]
  - NEURALGIA [None]
  - THROMBOPHLEBITIS SUPERFICIAL [None]
  - AMPUTATION STUMP PAIN [None]
